FAERS Safety Report 9661171 (Version 1)
Quarter: 2013Q4

REPORT INFORMATION
  Report Type: Spontaneous
  Country: US (occurrence: US)
  Receive Date: 20131031
  Receipt Date: 20131031
  Transmission Date: 20140711
  Serious: No
  Sender: FDA-Public Use
  Company Number: US-ENDO PHARMACEUTICALS INC.-ALLO20110031

PATIENT
  Age: 72 Year
  Sex: Male
  Weight: 65.83 kg

DRUGS (2)
  1. ALLOPURINOL TABLETS 100MG [Suspect]
     Indication: GOUT
     Route: 048
     Dates: start: 20111108
  2. COLCRYS [Concomitant]
     Indication: GOUT
     Dosage: UNKNOWN

REACTIONS (2)
  - Pollakiuria [Unknown]
  - Gout [Unknown]
